FAERS Safety Report 5772457-5 (Version None)
Quarter: 2008Q2

REPORT INFORMATION
  Report Type: 
  Country: None (occurrence: None)
  Receive Date: 20080613
  Receipt Date: 20080521
  Transmission Date: 20081010
  Serious: Yes (Life-Threatening)
  Sender: FDA-Public Use
  Company Number: PHBS2008FR04712

PATIENT
  Weight: 2.46 kg

DRUGS (6)
  1. OXYTOCIN [Suspect]
     Dosage: UNK
     Route: 064
     Dates: start: 20061001
  2. DINOPROSTONE [Suspect]
     Indication: INDUCED LABOUR
     Dosage: 10 MG
     Route: 064
     Dates: start: 20061001
  3. ANAESTHETICS [Concomitant]
     Dosage: UNK
     Route: 064
     Dates: start: 20061001
  4. NIFEDIPINE [Concomitant]
     Indication: THREATENED LABOUR
     Dosage: UNK,UNK
     Route: 064
     Dates: start: 20060101
  5. PHLOROGLUCINOL [Concomitant]
     Indication: THREATENED LABOUR
     Route: 064
     Dates: start: 20060101
  6. CORTICOSTEROIDS [Concomitant]
     Route: 064
     Dates: start: 20060101

REACTIONS (3)
  - APGAR SCORE LOW [None]
  - FOETAL DISTRESS SYNDROME [None]
  - MATERNAL DRUGS AFFECTING FOETUS [None]
